FAERS Safety Report 6687807-5 (Version None)
Quarter: 2010Q2

REPORT INFORMATION
  Report Type: 
  Country: None (occurrence: None)
  Receive Date: 20100420
  Receipt Date: 20100415
  Transmission Date: 20101027
  Serious: Yes (Other)
  Sender: FDA-Public Use
  Company Number: GB-WYE-G05965210

PATIENT
  Sex: Female

DRUGS (1)
  1. EFFEXOR [Suspect]
     Indication: DRUG USE FOR UNKNOWN INDICATION
     Dosage: 225MG (FREQUENCY UNSPECIFIED)
     Route: 048
     Dates: start: 20100201

REACTIONS (2)
  - DYSTONIA [None]
  - OCULOGYRIC CRISIS [None]
